FAERS Safety Report 5588588-9 (Version None)
Quarter: 2007Q4

REPORT INFORMATION
  Report Type: 
  Country: None (occurrence: None)
  Receive Date: 20071212
  Receipt Date: 20071105
  Transmission Date: 20080405
  Serious: No
  Sender: FDA-Public Use
  Company Number: 2007RL000500

PATIENT
  Age: 47 Year
  Sex: Male
  Weight: 65.7716 kg

DRUGS (6)
  1. LOVAZA [Suspect]
     Indication: BLOOD CHOLESTEROL INCREASED
     Dosage: 2 GM;QD;PO
     Route: 048
     Dates: start: 20070901, end: 20071031
  2. VALIUM /00266901/ [Concomitant]
  3. LORTAB /01744401/ [Concomitant]
  4. ASPIRIN [Concomitant]
  5. ZANTAC [Concomitant]
  6. STOOL SOFTENER [Concomitant]

REACTIONS (7)
  - CHILLS [None]
  - CONDITION AGGRAVATED [None]
  - CONSTIPATION [None]
  - HEADACHE [None]
  - HOT FLUSH [None]
  - OFF LABEL USE [None]
  - TREATMENT NONCOMPLIANCE [None]
